FAERS Safety Report 12282252 (Version 1)
Quarter: 2016Q2

REPORT INFORMATION
  Report Type: Spontaneous
  Country: US (occurrence: None)
  Receive Date: 20160418
  Receipt Date: 20160418
  Transmission Date: 20160815
  Serious: Yes (Other)
  Sender: FDA-Public Use
  Company Number: None

PATIENT
  Age: 53 Year
  Sex: Female

DRUGS (1)
  1. LATANOPROST, 0.005% SANDOZ [Suspect]
     Active Substance: LATANOPROST
     Indication: GLAUCOMA
     Dosage: 1 GTT HS
     Route: 031
     Dates: start: 20160302, end: 20160305

REACTIONS (3)
  - Eye irritation [None]
  - Eye pain [None]
  - Dry eye [None]

NARRATIVE: CASE EVENT DATE: 20160305
